FAERS Safety Report 6349325-3 (Version None)
Quarter: 2009Q3

REPORT INFORMATION
  Report Type: 
  Country: None (occurrence: None)
  Receive Date: 20090911
  Receipt Date: 20090903
  Transmission Date: 20100115
  Serious: Yes (Death, Hospitalization)
  Sender: FDA-Public Use
  Company Number: B0592515A

PATIENT
  Age: 11 Year
  Sex: Female

DRUGS (11)
  1. LAMIVUDINE [Suspect]
     Indication: HIV INFECTION
  2. STAVUDINE [Suspect]
     Indication: HIV INFECTION
  3. EFAVIRENZ [Suspect]
     Indication: HIV INFECTION
  4. AMPHOTERICIN B [Concomitant]
  5. ISONIAZID [Concomitant]
  6. RIFAMPICIN [Concomitant]
  7. PYRAZINAMIDE [Concomitant]
  8. ETHIONAMIDE [Concomitant]
  9. FLUCONAZOLE [Concomitant]
  10. ACETAZOLAMIDE [Concomitant]
  11. PREDNISONE [Concomitant]

REACTIONS (22)
  - AGITATION [None]
  - ANHEDONIA [None]
  - APATHY [None]
  - COMA [None]
  - CONDITION AGGRAVATED [None]
  - CONFUSIONAL STATE [None]
  - CONVULSION [None]
  - DELIRIUM [None]
  - DISINHIBITION [None]
  - DISTURBANCE IN ATTENTION [None]
  - FEAR [None]
  - HALLUCINATIONS, MIXED [None]
  - HEMIPLEGIA [None]
  - HYDROCEPHALUS [None]
  - HYPONATRAEMIA [None]
  - HYPOPHAGIA [None]
  - IMMUNE RECONSTITUTION SYNDROME [None]
  - INTRACRANIAL PRESSURE INCREASED [None]
  - MENINGITIS TUBERCULOUS [None]
  - PERSECUTORY DELUSION [None]
  - POOR QUALITY SLEEP [None]
  - SOMNOLENCE [None]
